FAERS Safety Report 5648250-0 (Version None)
Quarter: 2008Q1

REPORT INFORMATION
  Report Type: 
  Country: None (occurrence: None)
  Receive Date: 20080131
  Receipt Date: 20071211
  Transmission Date: 20080703
  Serious: No
  Sender: FDA-Public Use
  Company Number: US200708002246

PATIENT
  Age: 52 Year
  Sex: Female

DRUGS (5)
  1. BYETTA [Suspect]
     Indication: TYPE 2 DIABETES MELLITUS
     Dosage: 5 UG, DAILY (1/D), SUBCUTANEOUS ; 5 UG, 2/D, SUBCUTANEOUS
     Route: 058
     Dates: start: 20070301, end: 20070101
  2. BYETTA [Suspect]
     Indication: TYPE 2 DIABETES MELLITUS
     Dosage: 5 UG, DAILY (1/D), SUBCUTANEOUS ; 5 UG, 2/D, SUBCUTANEOUS
     Route: 058
     Dates: start: 20070801, end: 20071130
  3. BYETTA [Suspect]
     Dosage: 10 UG, 2/D, SUBCUTANEOUS ; 20 UG, SUBCUTANEOUS
     Route: 058
     Dates: start: 20071210, end: 20071210
  4. BYETTA [Suspect]
     Dosage: 10 UG, 2/D, SUBCUTANEOUS ; 20 UG, SUBCUTANEOUS
     Route: 058
     Dates: start: 20071201
  5. METFORMIN HCL [Concomitant]

REACTIONS (5)
  - DECREASED APPETITE [None]
  - DEPRESSION [None]
  - INCORRECT DOSE ADMINISTERED [None]
  - MALAISE [None]
  - VOMITING [None]
